FAERS Safety Report 24936154 (Version 1)
Quarter: 2025Q1

REPORT INFORMATION
  Report Type: Spontaneous
  Country: RS (occurrence: RS)
  Receive Date: 20250206
  Receipt Date: 20250206
  Transmission Date: 20250409
  Serious: Yes (Death, Other)
  Sender: EXELIXIS
  Company Number: RS-IPSEN Group, Research and Development-2024-21915

PATIENT

DRUGS (1)
  1. CABOMETYX [Suspect]
     Active Substance: CABOZANTINIB S-MALATE
     Indication: Renal cancer

REACTIONS (1)
  - Malignant neoplasm progression [Fatal]
